FAERS Safety Report 8403201-0 (Version None)
Quarter: 2012Q2

REPORT INFORMATION
  Report Type: 
  Country: None (occurrence: None)
  Receive Date: 20120601
  Receipt Date: 20120524
  Transmission Date: 20120825
  Serious: Yes (Other)
  Sender: FDA-Public Use
  Company Number: US-JNJFOC-20110200074

PATIENT
  Sex: Female
  Weight: 74.84 kg

DRUGS (7)
  1. COLAZAL [Concomitant]
     Indication: CROHN'S DISEASE
  2. HUMIRA [Concomitant]
  3. REMICADE [Suspect]
     Indication: CROHN'S DISEASE
     Dosage: 31 INFUSIONS
     Route: 042
     Dates: start: 20030310, end: 20071118
  4. REMICADE [Suspect]
     Dosage: 16 INFUSIONS
     Route: 042
     Dates: start: 20080722, end: 20100527
  5. REMICADE [Suspect]
     Dosage: 3 INFUSIONS
     Route: 042
     Dates: start: 20080207, end: 20080529
  6. ENTOCORT EC [Concomitant]
  7. PREDNISONE TAB [Concomitant]

REACTIONS (1)
  - LYMPHOMA [None]
